FAERS Safety Report 22616067 (Version 1)
Quarter: 2023Q2

REPORT INFORMATION
  Report Type: Other
  Country: None (occurrence: SB)
  Receive Date: 20230619
  Receipt Date: 20230619
  Transmission Date: 20230722
  Serious: Yes (Life-Threatening, Hospitalization)
  Sender: FDA-Public Use
  Company Number: SB-B.Braun Medical Inc.-2142842

PATIENT
  Age: 47 Year
  Sex: Male

DRUGS (9)
  1. CEFTRIAXONE SODIUM [Suspect]
     Active Substance: CEFTRIAXONE SODIUM
     Indication: Infection
     Route: 042
  2. CLOXACILLIN [Suspect]
     Active Substance: CLOXACILLIN
  3. FLAGYL [Suspect]
     Active Substance: METRONIDAZOLE\METRONIDAZOLE HYDROCHLORIDE
  4. MIXTARD HUMAN 70/30 [Concomitant]
     Active Substance: INSULIN HUMAN
  5. Paradol [Concomitant]
  6. METFORMIN [Concomitant]
     Active Substance: METFORMIN HYDROCHLORIDE
  7. AMOXICILLIN [Suspect]
     Active Substance: AMOXICILLIN
  8. AMPICILLIN [Suspect]
     Active Substance: AMPICILLIN
  9. CIPROFLOXACIN [Suspect]
     Active Substance: CIPROFLOXACIN

REACTIONS (1)
  - Drug ineffective [Unknown]
